FAERS Safety Report 7958285-0 (Version None)
Quarter: 2011Q4

REPORT INFORMATION
  Report Type: 
  Country: None (occurrence: None)
  Receive Date: 20111205
  Receipt Date: 20081113
  Transmission Date: 20120403
  Serious: Yes (Hospitalization, Other)
  Sender: FDA-Public Use
  Company Number: PHHY2008MX043748

PATIENT
  Age: 56 Year
  Sex: Female

DRUGS (1)
  1. DIOVAN HCT [Suspect]
     Dosage: 1 DF, UNK, 160/25MG
     Dates: start: 20041001, end: 20080901

REACTIONS (7)
  - HEADACHE [None]
  - VARICOSE ULCERATION [None]
  - DIABETES MELLITUS [None]
  - HYPERTENSION [None]
  - HYPERCHOLESTEROLAEMIA [None]
  - HYPERTRIGLYCERIDAEMIA [None]
  - NAUSEA [None]
